FAERS Safety Report 24784002 (Version 1)
Quarter: 2024Q4

REPORT INFORMATION
  Report Type: Spontaneous
  Country: FI (occurrence: FI)
  Receive Date: 20241227
  Receipt Date: 20241227
  Transmission Date: 20250115
  Serious: Yes (Disabling, Other)
  Sender: TEVA
  Company Number: FI-TEVA-VS-3278392

PATIENT
  Age: 38 Year
  Sex: Male

DRUGS (2)
  1. DOXYCYCLINE [Suspect]
     Active Substance: DOXYCYCLINE
     Indication: Dysuria
     Dosage: RATIOPHARM GMBH, 2X10 TABLETS, ONE-WEEK COURSE
     Route: 065
     Dates: start: 20230516, end: 202305
  2. AZITHROMYCIN [Suspect]
     Active Substance: AZITHROMYCIN
     Indication: Product used for unknown indication
     Route: 065
     Dates: start: 2023

REACTIONS (8)
  - Erythema [Not Recovered/Not Resolved]
  - Penile erythema [Not Recovered/Not Resolved]
  - Dry skin [Not Recovered/Not Resolved]
  - Penile dermatitis [Unknown]
  - Balanoposthitis [Not Recovered/Not Resolved]
  - Genital dysaesthesia [Not Recovered/Not Resolved]
  - Genital hypoaesthesia [Not Recovered/Not Resolved]
  - Mucosal disorder [Not Recovered/Not Resolved]

NARRATIVE: CASE EVENT DATE: 20230101
